FAERS Safety Report 5696347-1 (Version None)
Quarter: 2008Q2

REPORT INFORMATION
  Report Type: 
  Country: None (occurrence: None)
  Receive Date: 20080407
  Receipt Date: 20080403
  Transmission Date: 20081010
  Serious: Yes (Death)
  Sender: FDA-Public Use
  Company Number: JP-ASTRAZENECA-2008AP02033

PATIENT
  Age: 75 Year
  Sex: Male

DRUGS (8)
  1. MEROPENEM [Suspect]
     Indication: PNEUMONIA
     Route: 042
     Dates: start: 20071115, end: 20071115
  2. DILTIAZEM HCL [Concomitant]
     Indication: CEREBRAL HAEMORRHAGE
     Route: 042
     Dates: start: 20071109, end: 20071116
  3. FAMOTIDINE [Concomitant]
     Route: 042
     Dates: start: 20071109, end: 20071122
  4. NITROGLYCERIN [Concomitant]
     Indication: CEREBRAL HAEMORRHAGE
     Route: 042
     Dates: start: 20071109, end: 20071116
  5. ADONA [Concomitant]
     Indication: CEREBRAL HAEMORRHAGE
     Route: 042
     Dates: start: 20071109, end: 20071111
  6. TRANSAMIN [Concomitant]
     Indication: CEREBRAL HAEMORRHAGE
     Route: 042
     Dates: start: 20071109, end: 20071111
  7. SEPAMIT-R [Concomitant]
     Indication: CEREBRAL HAEMORRHAGE
     Route: 048
     Dates: start: 20071114, end: 20071115
  8. AVELOX [Concomitant]
     Indication: PNEUMONIA
     Route: 048
     Dates: start: 20071114, end: 20071115

REACTIONS (1)
  - HEPATORENAL FAILURE [None]
